FAERS Safety Report 6630925-8 (Version None)
Quarter: 2010Q1

REPORT INFORMATION
  Report Type: 
  Country: None (occurrence: None)
  Receive Date: 20100311
  Receipt Date: 20100303
  Transmission Date: 20100710
  Serious: Yes (Other)
  Sender: FDA-Public Use
  Company Number: AU-BAXTER-2010BH005759

PATIENT
  Sex: Female

DRUGS (2)
  1. SODIUM CHLORIDE 0.9% IN PLASTIC CONTAINER [Suspect]
     Indication: CHEMOTHERAPY
     Route: 042
     Dates: start: 20100202, end: 20100202
  2. PACLITAXEL [Suspect]
     Indication: CHEMOTHERAPY
     Route: 042
     Dates: start: 20100202, end: 20100202

REACTIONS (1)
  - ANAPHYLACTOID REACTION [None]
